FAERS Safety Report 18925323 (Version 2)
Quarter: 2021Q1

REPORT INFORMATION
  Report Type: Report from Study
  Country: IN (occurrence: IN)
  Receive Date: 20210222
  Receipt Date: 20210302
  Transmission Date: 20210420
  Serious: Yes (Death, Hospitalization)
  Sender: FDA-Public Use
  Company Number: IN-PFIZER INC-2021141657

PATIENT
  Age: 39 Year
  Sex: Male
  Weight: 60 kg

DRUGS (17)
  1. VORICONAZOLE. [Concomitant]
     Active Substance: VORICONAZOLE
     Indication: ANTIFUNGAL TREATMENT
     Dosage: 200 MG, 2X/DAY
     Dates: start: 20210217
  2. SHELCAL CT [Concomitant]
     Indication: MINERAL SUPPLEMENTATION
     Dosage: 500 MG, 2X/DAY
     Dates: start: 20210218
  3. MEROPENEM. [Concomitant]
     Active Substance: MEROPENEM
     Indication: ANTIBIOTIC THERAPY
     Dosage: 1 G, 3X/DAY
     Dates: start: 20210217
  4. POTKLOR [Concomitant]
     Indication: HYPOKALAEMIA
     Dosage: 20 ML, 3X/DAY
     Dates: start: 20210217
  5. SEPTRAN [SULFAMETHOXAZOLE;TRIMETHOPRIM] [Concomitant]
     Active Substance: SULFAMETHOXAZOLE\TRIMETHOPRIM
     Indication: ANTIBIOTIC THERAPY
     Dosage: 1 DF, 1X/DAY
     Dates: start: 20210217
  6. CLINDAMYCIN. [Concomitant]
     Active Substance: CLINDAMYCIN
     Indication: ANTIBIOTIC THERAPY
     Dosage: 600 MG, 3X/DAY
     Dates: start: 20210217
  7. DOMSTAL DT [Concomitant]
     Indication: VOMITING
     Dosage: 10 MG, 3X/DAY
     Dates: start: 20210217
  8. PARACETAMOL [Concomitant]
     Active Substance: ACETAMINOPHEN
     Indication: PYREXIA
     Dosage: 500 MG, 3X/DAY
     Dates: start: 20210217
  9. ADDIPHOS [POTASSIUM HYDROXIDE;POTASSIUM PHOSPHATE DIBASIC;SODIUM PHOSP [Concomitant]
     Indication: HYPERPARATHYROIDISM
     Dosage: 1 SACHET, TDA
     Dates: start: 20210218
  10. LASIX M [Concomitant]
     Active Substance: FUROSEMIDE
     Indication: HYPERTENSION
     Dosage: 40 MG, 2X/DAY
     Dates: start: 20210217, end: 20210219
  11. INOTUZUMAB OZOGAMICIN [Suspect]
     Active Substance: INOTUZUMAB OZOGAMICIN
     Indication: B-CELL TYPE ACUTE LEUKAEMIA
     Dosage: 1.8 MG/M2/CYCLE, CYCLIC (ADMINISTERED IN 3 DIVIDED DOSES: DAY 1, 8 AND 15)
     Route: 042
     Dates: start: 20210130, end: 20210219
  12. VORICONAZOLE. [Concomitant]
     Active Substance: VORICONAZOLE
     Indication: ANTIFUNGAL TREATMENT
     Dosage: 200 MG, 2X/DAY
     Dates: start: 20210217
  13. PANTOCID?D [Concomitant]
     Indication: ANTACID THERAPY
     Dosage: 40 MG, 1X/DAY
     Dates: start: 20210217
  14. METRONIDAZOLE. [Concomitant]
     Active Substance: METRONIDAZOLE
     Indication: ANTIBIOTIC THERAPY
     Dosage: 500 MG, 3X/DAY
     Dates: start: 20210217
  15. VALCIVIR [Concomitant]
     Active Substance: VALACYCLOVIR HYDROCHLORIDE
     Indication: ANTIVIRAL TREATMENT
     Dosage: 500 MG, 1X/DAY
     Dates: start: 20210217
  16. MAGNESIUM SULPHATE ATLANTIC [Concomitant]
     Active Substance: MAGNESIUM SULFATE
     Indication: MINERAL SUPPLEMENTATION
     Dosage: 1 G
     Dates: start: 20210217
  17. CREMAFFIN [Concomitant]
     Indication: LAXATIVE SUPPORTIVE CARE
     Dosage: 30 ML
     Dates: start: 20210217

REACTIONS (2)
  - Sepsis [Fatal]
  - Hypercalcaemia [Recovered/Resolved]

NARRATIVE: CASE EVENT DATE: 20210209
